FAERS Safety Report 22356894 (Version 1)
Quarter: 2023Q2

REPORT INFORMATION
  Report Type: Spontaneous
  Country: ES (occurrence: ES)
  Receive Date: 20230523
  Receipt Date: 20230523
  Transmission Date: 20230721
  Serious: Yes (Other)
  Sender: FDA-Public Use
  Company Number: None

PATIENT
  Age: 26 Year
  Sex: Female
  Weight: 62 kg

DRUGS (2)
  1. BIKTARVY [Suspect]
     Active Substance: BICTEGRAVIR SODIUM\EMTRICITABINE\TENOFOVIR ALAFENAMIDE FUMARATE
     Indication: HIV infection
     Dosage: 1 DOSAGE FORM
     Route: 048
     Dates: start: 20220311
  2. BETNOVATE [Concomitant]
     Active Substance: BETAMETHASONE
     Indication: Fungal skin infection
     Dosage: 1.0 APLIC C/24 H
     Route: 061
     Dates: start: 20130412

REACTIONS (1)
  - Galactorrhoea [Not Recovered/Not Resolved]

NARRATIVE: CASE EVENT DATE: 20220430
